FAERS Safety Report 8610288-9 (Version None)
Quarter: 2012Q3

REPORT INFORMATION
  Report Type: 
  Country: None (occurrence: None)
  Receive Date: 20120822
  Receipt Date: 20120813
  Transmission Date: 20120928
  Serious: Yes (Hospitalization)
  Sender: FDA-Public Use
  Company Number: US-ACCORD-014440

PATIENT
  Age: 5 Year
  Sex: Male

DRUGS (4)
  1. PNEUMOCOCCAL CONJUGATE VACCINE [Concomitant]
     Indication: INFECTION PROPHYLAXIS
  2. TACROLIMUS [Suspect]
     Route: 048
  3. PENICILLIN [Concomitant]
     Indication: INFECTION PROPHYLAXIS
  4. GANCICLOVIR [Concomitant]

REACTIONS (4)
  - ACUTE RESPIRATORY DISTRESS SYNDROME [None]
  - PNEUMOCOCCAL SEPSIS [None]
  - PURPURA FULMINANS [None]
  - RENAL FAILURE [None]
